FAERS Safety Report 5855946-4 (Version None)
Quarter: 2008Q3

REPORT INFORMATION
  Report Type: 
  Country: None (occurrence: None)
  Receive Date: 20080825
  Receipt Date: 20080821
  Transmission Date: 20090109
  Serious: Yes (Other)
  Sender: FDA-Public Use
  Company Number: PHNU2008DE01976

PATIENT
  Sex: Male

DRUGS (4)
  1. DIOVAN [Suspect]
     Dosage: UNK
     Dates: start: 19980101, end: 20050201
  2. AMLODIPINE [Concomitant]
     Dosage: UNK
     Dates: start: 19980101, end: 20030101
  3. METOPROLOL TARTRATE [Concomitant]
  4. HYDROCHLOROTHIAZIDE [Concomitant]

REACTIONS (5)
  - ANGIOEDEMA [None]
  - DERMATITIS CONTACT [None]
  - EYE SWELLING [None]
  - LIP OEDEMA [None]
  - PRURITUS [None]
